FAERS Safety Report 9449295 (Version 2)
Quarter: 2013Q3

REPORT INFORMATION
  Report Type: Spontaneous
  Country: HU (occurrence: HU)
  Receive Date: 20130808
  Receipt Date: 20130822
  Transmission Date: 20140515
  Serious: Yes (Death)
  Sender: FDA-Public Use
  Company Number: HU-PFIZER INC-2013231085

PATIENT
  Age: 57 Year
  Sex: Female

DRUGS (7)
  1. SUTENT [Suspect]
     Indication: RENAL CANCER METASTATIC
     Dosage: UNK
     Route: 048
  2. DIGOXIN [Concomitant]
  3. SYNCUMAR [Concomitant]
  4. CORENITEC [Concomitant]
  5. CONCOR [Concomitant]
  6. XANAX [Concomitant]
  7. LETROX [Concomitant]

REACTIONS (9)
  - Myocardial infarction [Fatal]
  - Disease progression [Unknown]
  - Renal cancer metastatic [Unknown]
  - Blood pressure increased [Unknown]
  - Asthenia [Unknown]
  - Somnolence [Unknown]
  - Dry mouth [Unknown]
  - Decreased appetite [Unknown]
  - Malaise [Unknown]
